FAERS Safety Report 21946650 (Version 1)
Quarter: 2023Q1

REPORT INFORMATION
  Report Type: Spontaneous
  Country: US (occurrence: None)
  Receive Date: 20230202
  Receipt Date: 20230202
  Transmission Date: 20230417
  Serious: Yes (Death)
  Sender: FDA-Public Use
  Company Number: None

PATIENT
  Age: 76 Year
  Sex: Male
  Weight: 160 kg

DRUGS (3)
  1. PAROXETINE [Suspect]
     Active Substance: PAROXETINE
     Indication: Depression
     Dosage: OTHER QUANTITY : 1 TABLET(S);?FREQUENCY : DAILY;?
     Route: 048
     Dates: start: 19980101, end: 20221104
  2. PAROXETINE [Concomitant]
  3. SIMVASTATIN [Concomitant]
     Active Substance: SIMVASTATIN

REACTIONS (7)
  - Abnormal dreams [None]
  - Nightmare [None]
  - Abnormal behaviour [None]
  - Antidepressant drug level above therapeutic [None]
  - Movement disorder [None]
  - Sleep disorder [None]
  - Cervical vertebral fracture [None]

NARRATIVE: CASE EVENT DATE: 20221104
